FAERS Safety Report 7818931-9 (Version None)
Quarter: 2011Q4

REPORT INFORMATION
  Report Type: 
  Country: None (occurrence: None)
  Receive Date: 20111017
  Receipt Date: 20111017
  Transmission Date: 20120403
  Serious: Yes (Other)
  Sender: FDA-Public Use
  Company Number: None

PATIENT
  Age: 56 Year
  Sex: Male
  Weight: 89.5 kg

DRUGS (14)
  1. ASPIRIN [Concomitant]
  2. LISINOPRIL [Concomitant]
  3. NIFEDIPINE [Suspect]
     Indication: HYPERTENSION
     Dosage: ONE PO DAILY
     Dates: start: 20040101
  4. CARVEDILOL [Concomitant]
  5. CLONIDINE [Concomitant]
  6. LASIX [Concomitant]
  7. GUPIZIDE [Concomitant]
  8. HYORALAZINE [Concomitant]
  9. FENOFIBRATE [Concomitant]
  10. SIMVASTATIN [Concomitant]
  11. IMOUR [Concomitant]
  12. EPZICOM [Concomitant]
  13. COPIDOGREL [Concomitant]
  14. SUSTIVA [Concomitant]

REACTIONS (1)
  - GINGIVAL HYPERPLASIA [None]
